FAERS Safety Report 23387749 (Version 1)
Quarter: 2024Q1

REPORT INFORMATION
  Report Type: Report from Study
  Country: US (occurrence: US)
  Receive Date: 20240110
  Receipt Date: 20240110
  Transmission Date: 20240410
  Serious: Yes (Hospitalization)
  Sender: FDA-Public Use
  Company Number: US-ABBVIE-5577861

PATIENT
  Sex: Female

DRUGS (1)
  1. RINVOQ [Suspect]
     Active Substance: UPADACITINIB
     Indication: Crohn^s disease
     Dosage: 45MG FOR 5 WEEKS
     Route: 048
     Dates: start: 20231121

REACTIONS (3)
  - Haemoglobin decreased [Unknown]
  - Pyrexia [Unknown]
  - Lipids abnormal [Unknown]
